FAERS Safety Report 11885222 (Version 1)
Quarter: 2015Q4

REPORT INFORMATION
  Report Type: Spontaneous
  Country: US (occurrence: None)
  Receive Date: 20151231
  Receipt Date: 20151231
  Transmission Date: 20160305
  Serious: Yes (Life-Threatening, Disabling)
  Sender: FDA-Public Use
  Company Number: None

PATIENT
  Age: 32 Year
  Sex: Female
  Weight: 50.8 kg

DRUGS (1)
  1. RISPERDAL [Suspect]
     Active Substance: RISPERIDONE
     Indication: PRODUCT USED FOR UNKNOWN INDICATION
     Route: 048
     Dates: start: 20130924, end: 20150430

REACTIONS (5)
  - Spinal disorder [None]
  - Extrapyramidal disorder [None]
  - Tardive dyskinesia [None]
  - Myoclonus [None]
  - Parkinsonism [None]

NARRATIVE: CASE EVENT DATE: 20130930
